FAERS Safety Report 5890977-X (Version None)
Quarter: 2008Q3

REPORT INFORMATION
  Report Type: 
  Country: None (occurrence: None)
  Receive Date: 20080922
  Receipt Date: 20080915
  Transmission Date: 20090109
  Serious: Yes (Hospitalization)
  Sender: FDA-Public Use
  Company Number: A0748603A

PATIENT
  Age: 69 Year
  Sex: Male
  Weight: 68.1 kg

DRUGS (3)
  1. COREG [Suspect]
     Indication: DRUG USE FOR UNKNOWN INDICATION
  2. REVLIMID [Suspect]
     Dosage: 25MG CYCLIC
     Route: 048
     Dates: start: 20041215
  3. DEXAMETHASONE [Suspect]
     Dosage: 40MG CYCLIC
     Route: 048
     Dates: start: 20041215

REACTIONS (7)
  - ANOREXIA [None]
  - DEEP VEIN THROMBOSIS [None]
  - DIZZINESS [None]
  - HYPOTENSION [None]
  - OEDEMA PERIPHERAL [None]
  - PNEUMONIA [None]
  - STOMACH DISCOMFORT [None]
